FAERS Safety Report 19115378 (Version 3)
Quarter: 2021Q2

REPORT INFORMATION
  Report Type: Spontaneous
  Country: FR (occurrence: FR)
  Receive Date: 20210409
  Receipt Date: 20210602
  Transmission Date: 20210717
  Serious: Yes (Death, Other)
  Sender: FDA-Public Use
  Company Number: NVSC2021FR079858

PATIENT
  Age: 61 Year
  Sex: Male
  Weight: 111 kg

DRUGS (5)
  1. TELMISARTAN. [Interacting]
     Active Substance: TELMISARTAN
     Dosage: UNK
     Route: 065
  2. DAFALGAN [Suspect]
     Active Substance: ACETAMINOPHEN
     Indication: MUSCLE RUPTURE
     Dosage: 10000 MG
     Route: 065
  3. TELMISARTAN. [Suspect]
     Active Substance: TELMISARTAN
     Indication: HYPERTENSION
     Dosage: 1 DF
     Route: 065
     Dates: start: 20190503
  4. TRAMADOL TEVA [Interacting]
     Active Substance: TRAMADOL
     Indication: ARTHRALGIA
  5. TRAMADOL TEVA [Interacting]
     Active Substance: TRAMADOL
     Indication: MUSCLE RUPTURE
     Dosage: 1 UNK, Q6H (TOOK ONLY 3 DF OF TRAMADOL TEVA IN TOTAL)
     Route: 065
     Dates: start: 202101

REACTIONS (22)
  - Coordination abnormal [Not Recovered/Not Resolved]
  - Tremor [Unknown]
  - Cardiac arrest [Fatal]
  - Dry mouth [Not Recovered/Not Resolved]
  - Arthralgia [Not Recovered/Not Resolved]
  - Somnolence [Fatal]
  - Hyperhidrosis [Fatal]
  - Drug interaction [Not Recovered/Not Resolved]
  - Balance disorder [Unknown]
  - General physical health deterioration [Fatal]
  - Thirst [Unknown]
  - Disorganised speech [Unknown]
  - Dizziness [Not Recovered/Not Resolved]
  - Hypoaesthesia [Not Recovered/Not Resolved]
  - Abdominal distension [Fatal]
  - Pulmonary embolism [Fatal]
  - Decreased appetite [Not Recovered/Not Resolved]
  - Delirium [Not Recovered/Not Resolved]
  - Fall [Not Recovered/Not Resolved]
  - Hallucination [Unknown]
  - Diarrhoea [Fatal]
  - Confusional state [Fatal]

NARRATIVE: CASE EVENT DATE: 202101
